FAERS Safety Report 9227036 (Version 5)
Quarter: 2014Q1

REPORT INFORMATION
  Report Type: Spontaneous
  Country: US (occurrence: None)
  Receive Date: 20130410
  Receipt Date: 20140306
  Transmission Date: 20141002
  Serious: Yes (Hospitalization, Other)
  Sender: FDA-Public Use
  Company Number: JPI-P-025645

PATIENT
  Age: 33 Year
  Sex: Female

DRUGS (3)
  1. XYREM (SODIUM OXYBATE) ORAL SOLUTION, 500MG/ML [Suspect]
     Indication: FIBROMYALGIA
     Dosage: 6 GM (3GM, 2 IN 1 D), ORAL
     Route: 048
     Dates: start: 20120913, end: 2012
  2. XYREM (SODIUM OXYBATE) ORAL SOLUTION, 500MG/ML [Suspect]
     Indication: INSOMNIA
     Dosage: 6 GM (3GM, 2 IN 1 D), ORAL
     Route: 048
     Dates: start: 20120913, end: 2012
  3. ALL OTHER THERAPEUTIC PRODUCTS [Concomitant]

REACTIONS (11)
  - Dry throat [None]
  - Throat irritation [None]
  - General physical health deterioration [None]
  - Abdominal operation [None]
  - Intestinal perforation [None]
  - Postoperative adhesion [None]
  - Throat irritation [None]
  - Oropharyngeal pain [None]
  - Dry mouth [None]
  - Off label use [None]
  - Post procedural complication [None]
